FAERS Safety Report 9010841 (Version 2)
Quarter: 2013Q2

REPORT INFORMATION
  Report Type: Spontaneous
  Country: DE (occurrence: DE)
  Receive Date: 20130111
  Receipt Date: 20130412
  Transmission Date: 20140414
  Serious: Yes (Other)
  Sender: FDA-Public Use
  Company Number: PHHY2013DE002522

PATIENT
  Age: 64 Year
  Sex: Female

DRUGS (3)
  1. GILENYA [Suspect]
     Indication: MULTIPLE SCLEROSIS
     Dosage: 0.5 MG, QD
     Route: 048
     Dates: start: 20110510, end: 20130222
  2. FAMPYRA [Concomitant]
     Indication: MULTIPLE SCLEROSIS
     Dosage: 10 MG, BID
     Route: 048
     Dates: start: 20121119
  3. TOVIAZ [Concomitant]
     Indication: INCONTINENCE
     Dosage: 8 MG, QD
     Route: 048
     Dates: start: 20111102

REACTIONS (2)
  - Biopsy endometrium abnormal [Unknown]
  - Cervix carcinoma stage 0 [Not Recovered/Not Resolved]
